FAERS Safety Report 14349340 (Version 2)
Quarter: 2018Q4

REPORT INFORMATION
  Report Type: Spontaneous
  Country: US (occurrence: US)
  Receive Date: 20180104
  Receipt Date: 20181122
  Transmission Date: 20190204
  Serious: Yes (Other)
  Sender: FDA-Public Use
  Company Number: US-ASTRAZENECA-2018SE00155

PATIENT
  Sex: Female

DRUGS (17)
  1. CELEBREX [Concomitant]
     Active Substance: CELECOXIB
     Dates: start: 20040714
  2. CELEBREX [Concomitant]
     Active Substance: CELECOXIB
     Dates: start: 20050116
  3. METHYLPREDNISOLONE. [Concomitant]
     Active Substance: METHYLPREDNISOLONE
     Dates: start: 20050915
  4. CELEBREX [Concomitant]
     Active Substance: CELECOXIB
     Dates: start: 20040604
  5. CEPHALEXIN. [Concomitant]
     Active Substance: CEPHALEXIN
     Dates: start: 20050829
  6. CELEBREX [Concomitant]
     Active Substance: CELECOXIB
     Dates: start: 20040823
  7. CELEBREX [Concomitant]
     Active Substance: CELECOXIB
     Dates: start: 20041105
  8. HYDROCODON-ACETAMINOPHEN [Concomitant]
     Active Substance: ACETAMINOPHEN\HYDROCODONE
     Dates: start: 20040714
  9. NEXIUM [Suspect]
     Active Substance: ESOMEPRAZOLE MAGNESIUM
     Indication: GASTROOESOPHAGEAL REFLUX DISEASE
     Route: 048
     Dates: start: 2006, end: 2016
  10. NEXIUM [Suspect]
     Active Substance: ESOMEPRAZOLE MAGNESIUM
     Indication: GASTROOESOPHAGEAL REFLUX DISEASE
     Route: 048
     Dates: start: 20181004
  11. PREVACID [Suspect]
     Active Substance: LANSOPRAZOLE
     Indication: GASTROOESOPHAGEAL REFLUX DISEASE
     Route: 065
     Dates: start: 20061107, end: 2016
  12. CELEBREX [Concomitant]
     Active Substance: CELECOXIB
     Dates: start: 20041006
  13. HYDROXYZINE [Concomitant]
     Active Substance: HYDROXYZINE HYDROCHLORIDE
     Dates: start: 20050210
  14. CELEBREX [Concomitant]
     Active Substance: CELECOXIB
     Dates: start: 20041209
  15. CELEBREX [Concomitant]
     Active Substance: CELECOXIB
     Dates: start: 20050210
  16. PREDNISONE. [Concomitant]
     Active Substance: PREDNISONE
     Dates: start: 20050210
  17. SULFAMETHOXAZOLE [Concomitant]
     Active Substance: SULFAMETHOXAZOLE
     Dates: start: 20060216

REACTIONS (2)
  - Chronic kidney disease [Unknown]
  - Renal injury [Unknown]
